FAERS Safety Report 13586563 (Version 3)
Quarter: 2017Q4

REPORT INFORMATION
  Report Type: Spontaneous
  Country: AR (occurrence: AR)
  Receive Date: 20170526
  Receipt Date: 20171018
  Transmission Date: 20180320
  Serious: Yes (Life-Threatening, Other)
  Sender: FDA-Public Use
  Company Number: AR-NOVOPROD-545726

PATIENT
  Age: 20 Year
  Sex: Male
  Weight: 74 kg

DRUGS (3)
  1. NOVOSEVEN RT [Suspect]
     Active Substance: COAGULATION FACTOR VIIA RECOMBINANT HUMAN
     Indication: PUNCTURE SITE HAEMORRHAGE
     Dosage: 90 ?G/KG, EVERY TWO HOURS
     Route: 065
     Dates: start: 20170327
  2. NOVOSEVEN RT [Suspect]
     Active Substance: COAGULATION FACTOR VIIA RECOMBINANT HUMAN
     Indication: FACTOR IX DEFICIENCY
     Dosage: 90 ?G/KG
     Route: 065
     Dates: start: 2006
  3. NOVOSEVEN RT [Suspect]
     Active Substance: COAGULATION FACTOR VIIA RECOMBINANT HUMAN
     Indication: ARTERIAL CATHETERISATION
     Dosage: 90 ?G/KG, EVERY TWO HOURS
     Route: 065
     Dates: start: 20170104

REACTIONS (4)
  - Haematoma [Unknown]
  - Drug ineffective [Unknown]
  - Drug ineffective [Unknown]
  - Haematoma [Unknown]

NARRATIVE: CASE EVENT DATE: 20170105
